FAERS Safety Report 10339398 (Version 2)
Quarter: 2014Q3

REPORT INFORMATION
  Report Type: Spontaneous
  Country: US (occurrence: US)
  Receive Date: 20140724
  Receipt Date: 20140807
  Transmission Date: 20150326
  Serious: No
  Sender: FDA-Public Use
  Company Number: US-BAYER-2014-109232

PATIENT
  Age: 45 Year
  Sex: Female

DRUGS (1)
  1. ALEVE [Suspect]
     Active Substance: NAPROXEN SODIUM
     Indication: NEURALGIA
     Dosage: 2 DF, QD
     Route: 048
     Dates: start: 201406

REACTIONS (2)
  - Drug effect incomplete [None]
  - Incorrect drug administration duration [None]

NARRATIVE: CASE EVENT DATE: 201406
